FAERS Safety Report 6320099 (Version 4)
Quarter: 2013Q2

REPORT INFORMATION
  Report Type: Report from Study
  Country: FR (occurrence: FR)
  Receive Date: 20070525
  Receipt Date: 20130410
  Transmission Date: 20140414
  Serious: Yes (Hospitalization, Disabling, Other)
  Sender: FDA-Public Use
  Company Number: FR-JNJFOC-20070504227

PATIENT
  Age: 26 Year
  Sex: Male
  Weight: 45 kg

DRUGS (2)
  1. REMICADE [Suspect]
     Indication: CROHN^S DISEASE
     Route: 042
     Dates: start: 20060919
  2. AZATHIAPRINE [Concomitant]
     Indication: CROHN^S DISEASE
     Dates: start: 200501

REACTIONS (3)
  - Small intestinal obstruction [Recovered/Resolved]
  - Malnutrition [Recovered/Resolved]
  - Intestinal stenosis [Recovered/Resolved]
